FAERS Safety Report 11589346 (Version 1)
Quarter: 2015Q4

REPORT INFORMATION
  Report Type: Spontaneous
  Country: GB (occurrence: GB)
  Receive Date: 20151002
  Receipt Date: 20151002
  Transmission Date: 20160304
  Serious: Yes (Death, Other)
  Sender: FDA-Public Use
  Company Number: GB-PFIZER INC-2015321931

PATIENT
  Age: 39 Year
  Sex: Female

DRUGS (2)
  1. XALKORI [Suspect]
     Active Substance: CRIZOTINIB
     Dosage: 250 MG, 2X/DAY, CYCLIC
     Route: 048
     Dates: start: 20130920
  2. XALKORI [Suspect]
     Active Substance: CRIZOTINIB
     Dosage: 200 MG, 1X/DAY

REACTIONS (7)
  - Constipation [Unknown]
  - Photopsia [Unknown]
  - Oxygen saturation decreased [Unknown]
  - Death [Fatal]
  - Liver function test abnormal [Fatal]
  - Visual impairment [Unknown]
  - Renal impairment [Unknown]

NARRATIVE: CASE EVENT DATE: 2013
